FAERS Safety Report 6630277-3 (Version None)
Quarter: 2010Q1

REPORT INFORMATION
  Report Type: 
  Country: None (occurrence: None)
  Receive Date: 20100311
  Receipt Date: 20100304
  Transmission Date: 20100710
  Serious: Yes (Hospitalization)
  Sender: FDA-Public Use
  Company Number: B0639127A

PATIENT
  Age: 28 Year
  Sex: Female

DRUGS (1)
  1. AUGMENTIN '125' [Suspect]
     Indication: BACTERIURIA
     Route: 048
     Dates: start: 20100224

REACTIONS (7)
  - CAESAREAN SECTION [None]
  - DIARRHOEA [None]
  - DRUG EXPOSURE DURING PREGNANCY [None]
  - ERYTHEMA [None]
  - LABOUR PAIN [None]
  - PRURITUS [None]
  - RASH MACULAR [None]
